FAERS Safety Report 8316624-5 (Version None)
Quarter: 2012Q2

REPORT INFORMATION
  Report Type: 
  Country: None (occurrence: None)
  Receive Date: 20120427
  Receipt Date: 20120423
  Transmission Date: 20120825
  Serious: Yes (Other)
  Sender: FDA-Public Use
  Company Number: PHHY2011US18979

PATIENT
  Sex: Female

DRUGS (7)
  1. PRAVASTATIN [Concomitant]
     Indication: BLOOD CHOLESTEROL
     Dosage: 40 MG, QD
     Route: 048
  2. METOPROLOL TARTRATE [Concomitant]
     Dosage: 50 MG, QD
     Route: 048
  3. RECLAST [Suspect]
     Route: 042
     Dates: start: 20120316
  4. OMEPRAZOLE [Concomitant]
  5. RECLAST [Suspect]
     Indication: OSTEOPOROSIS
     Dosage: 5 MG/100ML, ANNUALLY
     Route: 042
     Dates: start: 20110202
  6. PRILOSEC [Concomitant]
     Indication: GASTROOESOPHAGEAL REFLUX DISEASE
     Dosage: 20 MG, QD
     Route: 048
  7. ZANTAC [Concomitant]
     Dosage: UNK UKN, UNK

REACTIONS (11)
  - BLOOD CHOLESTEROL INCREASED [None]
  - PAIN IN EXTREMITY [None]
  - NAUSEA [None]
  - PRURITUS [None]
  - MASS [None]
  - RASH MACULAR [None]
  - MUSCULOSKELETAL PAIN [None]
  - PERIARTHRITIS [None]
  - MYALGIA [None]
  - ORAL PAIN [None]
  - PAIN [None]
